FAERS Safety Report 23803978 (Version 1)
Quarter: 2024Q2

REPORT INFORMATION
  Report Type: Spontaneous
  Country: GB (occurrence: None)
  Receive Date: 20240501
  Receipt Date: 20240501
  Transmission Date: 20240715
  Serious: Yes (Other)
  Sender: FDA-Public Use
  Company Number: 2024A096796

PATIENT
  Age: 74 Year
  Sex: Female
  Weight: 61 kg

DRUGS (6)
  1. DAPAGLIFLOZIN [Suspect]
     Active Substance: DAPAGLIFLOZIN
     Indication: Heart rate decreased
     Dosage: 10
     Route: 048
     Dates: start: 20240408, end: 20240412
  2. ATORVASTATIN [Concomitant]
     Active Substance: ATORVASTATIN
     Dosage: 1 EVERY DAY, EACH NIGHT
     Route: 048
     Dates: start: 20230928
  3. CANDESARTAN [Concomitant]
     Active Substance: CANDESARTAN
     Dosage: 1 EVERY DAY
     Route: 048
     Dates: start: 20230928
  4. ESTRADIOL [Concomitant]
     Active Substance: ESTRADIOL
     Dosage: 1 TWICE A WEEK
     Route: 067
     Dates: start: 20231113
  5. LEVOTHYROXINE [Concomitant]
     Active Substance: LEVOTHYROXINE\LEVOTHYROXINE SODIUM
     Dosage: 1 EVERY DAY, EACH MORNING BEFORE BREAKFAST T...
     Route: 048
     Dates: start: 20230928
  6. ZEMTARD MR [Concomitant]
     Dosage: 1 EVERY DAY
     Route: 048
     Dates: start: 20230928

REACTIONS (1)
  - Bradycardia [Recovered/Resolved]

NARRATIVE: CASE EVENT DATE: 20240408
